FAERS Safety Report 4333988-8 (Version None)
Quarter: 2004Q2

REPORT INFORMATION
  Report Type: 
  Country: None (occurrence: None)
  Receive Date: 20040402
  Receipt Date: 20040317
  Transmission Date: 20050107
  Serious: Yes (Hospitalization)
  Sender: FDA-Public Use
  Company Number: DSA_24135_2004

PATIENT
  Age: 66 Year
  Sex: Male

DRUGS (2)
  1. ENALAPRIL MALEATE [Suspect]
     Indication: HYPERTENSION
     Dosage: VAR Q DAY PO
     Route: 048
     Dates: start: 20010101
  2. DAPSONE [Suspect]
     Dosage: 25 MG Q DAY

REACTIONS (5)
  - DERMATITIS BULLOUS [None]
  - LINEAR IGA DISEASE [None]
  - RASH ERYTHEMATOUS [None]
  - RASH VESICULAR [None]
  - VISUAL DISTURBANCE [None]
